FAERS Safety Report 23207199 (Version 1)
Quarter: 2023Q4

REPORT INFORMATION
  Report Type: Report from Study
  Country: IL (occurrence: IL)
  Receive Date: 20231120
  Receipt Date: 20231120
  Transmission Date: 20240109
  Serious: Yes (Hospitalization)
  Sender: FDA-Public Use
  Company Number: IL-TAKEDA-2023TUS111139

PATIENT
  Age: 91 Year
  Sex: Male

DRUGS (1)
  1. HUMAN IMMUNOGLOBULIN G\HYALURONIDASE RECOMBINANT HUMAN [Suspect]
     Active Substance: HUMAN IMMUNOGLOBULIN G\HYALURONIDASE (HUMAN RECOMBINANT)
     Indication: Secondary immunodeficiency
     Dosage: 35 GRAM, Q4WEEKS
     Route: 058
     Dates: start: 20230510, end: 20231112

REACTIONS (3)
  - Haemoglobin decreased [Unknown]
  - Malaise [Unknown]
  - Fatigue [Unknown]
